FAERS Safety Report 9743262 (Version 1)
Quarter: 2013Q4

REPORT INFORMATION
  Report Type: Spontaneous
  Country: US (occurrence: US)
  Receive Date: 20131210
  Receipt Date: 20131210
  Transmission Date: 20140711
  Serious: No
  Sender: FDA-Public Use
  Company Number: US-GILEAD-2009-0025567

PATIENT
  Age: 72 Year
  Sex: Male

DRUGS (11)
  1. LETAIRIS [Suspect]
     Indication: PULMONARY ARTERIAL HYPERTENSION
     Route: 048
     Dates: start: 20090925, end: 20091026
  2. LANOXIN [Concomitant]
  3. SPIRIVA [Concomitant]
  4. LIPITOR [Concomitant]
  5. ALDACTONE [Concomitant]
  6. TOPROL XL [Concomitant]
  7. COUMADIN [Concomitant]
  8. LASIX [Concomitant]
  9. ADVAIR [Concomitant]
  10. CARDIZEM [Concomitant]
  11. REMODULIN [Concomitant]

REACTIONS (1)
  - Local swelling [Recovered/Resolved]
